FAERS Safety Report 16288653 (Version 2)
Quarter: 2019Q4

REPORT INFORMATION
  Report Type: Spontaneous
  Country: US (occurrence: US)
  Receive Date: 20190509
  Receipt Date: 20191011
  Transmission Date: 20200122
  Serious: Yes (Other)
  Sender: FDA-Public Use
  Company Number: US-PFIZER INC-2019193196

PATIENT
  Sex: Female
  Weight: 62.6 kg

DRUGS (1)
  1. CELEBREX [Suspect]
     Active Substance: CELECOXIB
     Indication: ARTHRALGIA
     Dosage: UNK
     Route: 048
     Dates: start: 1979

REACTIONS (2)
  - Nephropathy [Unknown]
  - Back pain [Unknown]

NARRATIVE: CASE EVENT DATE: 201811
